FAERS Safety Report 9956111 (Version 1)
Quarter: 2014Q1

REPORT INFORMATION
  Report Type: Report from Study
  Country: US (occurrence: US)
  Receive Date: 20140304
  Receipt Date: 20140304
  Transmission Date: 20141002
  Serious: No
  Sender: FDA-Public Use
  Company Number: US-ABBVIE-13P-163-1090343-00

PATIENT
  Age: 25 Year
  Sex: Female

DRUGS (7)
  1. HUMIRA [Suspect]
     Indication: CROHN^S DISEASE
     Dosage: DAY 1
     Dates: start: 20121112, end: 20121112
  2. HUMIRA [Suspect]
     Dosage: DAY 15
  3. HUMIRA [Suspect]
  4. AZATHIOPRINE [Concomitant]
     Indication: CROHN^S DISEASE
     Dosage: 100 MG DAILY
  5. ASACOL [Concomitant]
     Indication: CROHN^S DISEASE
     Dosage: 3200 MG DAILY
  6. SPINTEC [Concomitant]
     Indication: CONTRACEPTION
     Dosage: DAILY
  7. CELEXA [Concomitant]
     Indication: ANXIETY
     Dosage: 20 MG DAILY

REACTIONS (2)
  - Injection site bruising [Not Recovered/Not Resolved]
  - Injection site erythema [Not Recovered/Not Resolved]
